FAERS Safety Report 20090777 (Version 1)
Quarter: 2021Q4

REPORT INFORMATION
  Report Type: Spontaneous
  Country: US (occurrence: None)
  Receive Date: 20211119
  Receipt Date: 20211119
  Transmission Date: 20220303
  Serious: Yes (Hospitalization)
  Sender: FDA-Public Use
  Company Number: None

PATIENT
  Age: 77 Year
  Sex: Male

DRUGS (1)
  1. APIXABAN [Suspect]
     Active Substance: APIXABAN
     Indication: Deep vein thrombosis
     Dosage: FREQUENCY : TWICE A DAY;?
     Route: 048
     Dates: start: 20210708

REACTIONS (9)
  - Skin ulcer [None]
  - Dry gangrene [None]
  - Osteomyelitis [None]
  - Peripheral artery occlusion [None]
  - Vascular pseudoaneurysm [None]
  - Catheter site haematoma [None]
  - Peripheral swelling [None]
  - Mass [None]
  - Ecchymosis [None]

NARRATIVE: CASE EVENT DATE: 20210730
